FAERS Safety Report 11897186 (Version 2)
Quarter: 2016Q1

REPORT INFORMATION
  Report Type: Spontaneous
  Country: IT (occurrence: IT)
  Receive Date: 20160108
  Receipt Date: 20160120
  Transmission Date: 20160526
  Serious: Yes (Hospitalization, Other)
  Sender: FDA-Public Use
  Company Number: IT-HOSPIRA-3126147

PATIENT
  Age: 72 Year
  Sex: Female
  Weight: 46 kg

DRUGS (5)
  1. BLOPRESID [Concomitant]
     Active Substance: CANDESARTAN CILEXETIL\HYDROCHLOROTHIAZIDE
     Indication: HYPERTENSION
     Route: 048
  2. LOBIVON [Concomitant]
     Active Substance: NEBIVOLOL HYDROCHLORIDE
     Indication: HYPERTENSION
     Route: 048
  3. EUTIROX [Concomitant]
     Active Substance: LEVOTHYROXINE SODIUM
     Indication: HYPOTHYROIDISM
     Route: 048
  4. IRINOTECAN HOSPIRA [Suspect]
     Active Substance: IRINOTECAN
     Indication: GASTRIC CANCER STAGE IV
     Route: 042
     Dates: start: 20151026
  5. CAPECITABINE MEDAC [Suspect]
     Active Substance: CAPECITABINE
     Indication: GASTRIC CANCER STAGE IV
     Route: 048
     Dates: start: 20151026

REACTIONS (4)
  - Peripheral swelling [Unknown]
  - Blood test abnormal [Unknown]
  - Asthenia [Unknown]
  - Haemoglobinaemia [Unknown]

NARRATIVE: CASE EVENT DATE: 20151214
